FAERS Safety Report 8463843-3 (Version None)
Quarter: 2012Q2

REPORT INFORMATION
  Report Type: 
  Country: None (occurrence: None)
  Receive Date: 20120625
  Receipt Date: 20120614
  Transmission Date: 20120825
  Serious: Yes (Death, Hospitalization, Disabling, Other)
  Sender: FDA-Public Use
  Company Number: US-MYLANLABS-2009AC000393

PATIENT
  Age: 70 Year
  Sex: Male
  Weight: 83.92 kg

DRUGS (48)
  1. ZAROXOLYN [Concomitant]
  2. EUCERIN [Concomitant]
  3. GLYSET /01249401/ [Concomitant]
  4. ZOSYN [Concomitant]
  5. SILVER SULFADIAZINE [Concomitant]
  6. POTASSIUM ACETATE [Concomitant]
  7. NOVOLIN 70/30 [Concomitant]
  8. KAY CIEL DURA-TABS [Concomitant]
  9. PREDNISONE TAB [Concomitant]
  10. POTASSIUM CHLORIDE [Concomitant]
  11. TYGACIL [Concomitant]
  12. DIGOXIN [Suspect]
     Indication: PRODUCT USED FOR UNKNOWN INDICATION
     Route: 048
     Dates: start: 19990102, end: 20080423
  13. METOLAZONE [Concomitant]
  14. DULCOLAX [Concomitant]
  15. DARVOCET-N 100 [Concomitant]
  16. HYDRALAZINE HYDROCHLORIDE [Concomitant]
  17. ISOSORBIDE [Concomitant]
  18. CAPTOPRIL [Concomitant]
  19. MULTI-VITAMIN [Concomitant]
  20. IMDUR [Concomitant]
  21. ANTIBIOTICS [Concomitant]
  22. LEVAQUIN [Concomitant]
  23. XENADERM [Concomitant]
     Indication: LIMB INJURY
     Dosage: TO LEFT FOOT WOUND
  24. RESTORIL [Concomitant]
  25. ISOSORBID MONONITRATE [Concomitant]
  26. CAPOTEN [Concomitant]
  27. HYDROXYZINE [Concomitant]
  28. NOVOLOG [Concomitant]
     Dosage: 8 UNITS WITH BREAKFAST, 6 UNITS WITH LUNCH
  29. NOVOLOG [Concomitant]
     Dosage: 70/30 MIX 45 UNITS IN MORNING AND 40 UNITS IN THE EVENING
  30. HEPARIN [Concomitant]
  31. COREG [Concomitant]
  32. COLACE [Concomitant]
  33. INSULIN [Concomitant]
  34. WARFARIN SODIUM [Concomitant]
  35. AUGMENTIN '125' [Concomitant]
  36. LANTUS [Concomitant]
     Dosage: 35 UNITS
  37. COLCHICINE [Concomitant]
  38. NEXIUM [Concomitant]
  39. ACETAMINOPHEN [Concomitant]
  40. ALDACTONE [Concomitant]
  41. LASIX [Concomitant]
  42. VANCOMYCIN [Concomitant]
  43. PAXIL [Concomitant]
  44. FUROSEMIDE [Concomitant]
  45. ASPIRIN [Concomitant]
  46. UNASYN [Concomitant]
  47. ROCEPHIN [Concomitant]
  48. MYCOSTATIN [Concomitant]
     Dosage: TO AFFECTED AREAS

REACTIONS (106)
  - CHEST DISCOMFORT [None]
  - WAIST CIRCUMFERENCE INCREASED [None]
  - WOUND INFECTION STAPHYLOCOCCAL [None]
  - NECROSIS [None]
  - DISEASE RECURRENCE [None]
  - INFECTION [None]
  - PYREXIA [None]
  - HERNIA [None]
  - GOUTY ARTHRITIS [None]
  - CARDIAC MURMUR [None]
  - ARTERITIS [None]
  - NEPHROPATHY [None]
  - VOMITING [None]
  - ILL-DEFINED DISORDER [None]
  - DEATH [None]
  - ORTHOSTATIC HYPOTENSION [None]
  - CORONARY ARTERY DISEASE [None]
  - GANGRENE [None]
  - ATELECTASIS [None]
  - ABSCESS [None]
  - ATHERECTOMY [None]
  - GAIT DISTURBANCE [None]
  - ASPIRATION JOINT [None]
  - IMMOBILISATION PROLONGED [None]
  - DILATATION VENTRICULAR [None]
  - WEIGHT FLUCTUATION [None]
  - JAUNDICE [None]
  - FATIGUE [None]
  - DYSPNOEA [None]
  - OEDEMA PERIPHERAL [None]
  - CARDIAC FAILURE CONGESTIVE [None]
  - HEPATIC CIRRHOSIS [None]
  - FALL [None]
  - ULCER [None]
  - STAPHYLOCOCCAL BACTERAEMIA [None]
  - BALANCE DISORDER [None]
  - ENTEROBACTER BACTERAEMIA [None]
  - VENTRICULAR EXTRASYSTOLES [None]
  - CHOLELITHIASIS [None]
  - PAIN IN EXTREMITY [None]
  - ABDOMINAL DISCOMFORT [None]
  - RENAL DISORDER [None]
  - RENAL FAILURE [None]
  - CEREBROVASCULAR DISORDER [None]
  - HYPERTENSION [None]
  - CARDIOVASCULAR DISORDER [None]
  - CELLULITIS [None]
  - GOUTY TOPHUS [None]
  - SKIN GRAFT [None]
  - ARTHRALGIA [None]
  - INVESTIGATION ABNORMAL [None]
  - WOUND COMPLICATION [None]
  - ECONOMIC PROBLEM [None]
  - DEBRIDEMENT [None]
  - ASCITES [None]
  - ISCHAEMIC CARDIOMYOPATHY [None]
  - PERIPHERAL ARTERIAL OCCLUSIVE DISEASE [None]
  - OSTEOMYELITIS [None]
  - PLEURAL FIBROSIS [None]
  - HYPOGLYCAEMIA [None]
  - HYPERLIPIDAEMIA [None]
  - DEPRESSION [None]
  - TOE AMPUTATION [None]
  - IMPAIRED HEALING [None]
  - POLYARTHRITIS [None]
  - SENSORY LOSS [None]
  - ANAEMIA [None]
  - ASTHENIA [None]
  - DIABETES MELLITUS [None]
  - HEPATIC NEOPLASM [None]
  - SICK RELATIVE [None]
  - DIABETES MELLITUS INADEQUATE CONTROL [None]
  - LABORATORY TEST ABNORMAL [None]
  - SKIN DISORDER [None]
  - ARTERIOSCLEROSIS [None]
  - POST PROCEDURAL COMPLICATION [None]
  - WOUND DRAINAGE [None]
  - CARDIOVASCULAR INSUFFICIENCY [None]
  - THROMBOCYTOPENIA [None]
  - STAPHYLOCOCCAL INFECTION [None]
  - CONTUSION [None]
  - PARACENTESIS [None]
  - TREATMENT NONCOMPLIANCE [None]
  - RASH [None]
  - NEUROPATHY PERIPHERAL [None]
  - CENTRAL VENOUS CATHETERISATION [None]
  - ARTHRITIS BACTERIAL [None]
  - PNEUMONIA [None]
  - PULSE ABNORMAL [None]
  - ELECTROCARDIOGRAM ABNORMAL [None]
  - VENTRICULAR DYSFUNCTION [None]
  - HYPOTENSION [None]
  - MOBILITY DECREASED [None]
  - HEART RATE ABNORMAL [None]
  - DIARRHOEA [None]
  - INJURY [None]
  - DIZZINESS [None]
  - ARRHYTHMIA [None]
  - FAMILY STRESS [None]
  - ERYTHEMA [None]
  - TOBACCO ABUSE [None]
  - HYPERGLYCAEMIA [None]
  - SOCIAL PROBLEM [None]
  - DEHYDRATION [None]
  - AZOTAEMIA [None]
  - MUSCULAR WEAKNESS [None]
